FAERS Safety Report 10419543 (Version 1)
Quarter: 2014Q3

REPORT INFORMATION
  Report Type: Spontaneous
  Country: JP (occurrence: None)
  Receive Date: 20140827
  Receipt Date: 20140827
  Transmission Date: 20150326
  Serious: Yes (Hospitalization)
  Sender: FDA-Public Use
  Company Number: 2009JP000662

PATIENT
  Age: 29 Year
  Sex: Female
  Weight: 51 kg

DRUGS (9)
  1. FLUCONAMERCK KYOWA (FLUCONAZOLE) CAPSULE [Concomitant]
  2. TACROLIMUS CAPSULES (TACROLIMUS) CAPSULE [Suspect]
     Active Substance: TACROLIMUS
     Indication: LUPUS NEPHRITIS
     Dosage: 3 MG, ONCE DAILY, ORAL
     Route: 048
     Dates: start: 20080620
  3. PREDONINE [Suspect]
     Active Substance: PREDNISOLONE\PREDNISOLONE ACETATE\PREDNISOLONE SODIUM SUCCINATE
     Indication: AUTOIMMUNE HAEMOLYTIC ANAEMIA
     Dosage: 45 MG, ONCE DAILY, ORAL
     Route: 048
     Dates: start: 20080620, end: 20080710
  4. PARIET (RABEPRAZOLE SODIUM) TABLET [Concomitant]
  5. LIPITOR (ATORVASTATIN) TABLET [Concomitant]
  6. ONEALFA [Concomitant]
     Active Substance: ALFACALCIDOL
  7. ASPARA-CA (ASPARTATE CALCIUM) [Concomitant]
  8. PREDONINE [Suspect]
     Active Substance: PREDNISOLONE\PREDNISOLONE ACETATE\PREDNISOLONE SODIUM SUCCINATE
     Indication: LUPUS NEPHRITIS
     Dosage: 45 MG, ONCE DAILY, ORAL
     Route: 048
     Dates: start: 20080620, end: 20080710
  9. BAYASPIRIN (ACETYLSALICYLIC ACID) GASTRO-RESISTANT TABLET [Concomitant]

REACTIONS (4)
  - Autoimmune haemolytic anaemia [None]
  - Arthralgia [None]
  - Blood pressure increased [None]
  - Pyrexia [None]

NARRATIVE: CASE EVENT DATE: 20081003
